FAERS Safety Report 9323966 (Version 2)
Quarter: 2013Q3

REPORT INFORMATION
  Report Type: Spontaneous
  Country: NL (occurrence: NL)
  Receive Date: 20130603
  Receipt Date: 20130704
  Transmission Date: 20140515
  Serious: Yes (Death, Hospitalization)
  Sender: FDA-Public Use
  Company Number: NL-PFIZER INC-2013163628

PATIENT
  Age: 43 Year
  Sex: Male
  Weight: 100 kg

DRUGS (5)
  1. CRIZOTINIB [Suspect]
     Indication: NON-SMALL CELL LUNG CANCER
     Dosage: 250 MG, 2X/DAY
     Route: 048
     Dates: start: 201302, end: 20130507
  2. CRIZOTINIB [Suspect]
     Indication: ANAPLASTIC LYMPHOMA KINASE GENE MUTATION
  3. LOPERAMIDE [Concomitant]
     Indication: DIARRHOEA
     Dosage: 2 MG, AS NEEDED
     Route: 048
  4. PANADOL [Concomitant]
     Indication: PAIN
     Dosage: 1000 MG, 1 TO 4 TIMES A DAY
     Route: 048
  5. ZOLPIDEM [Concomitant]
     Dosage: 10 MG, 1X/DAY AS NEEDED
     Route: 048

REACTIONS (1)
  - Pulmonary hypertension [Fatal]
